FAERS Safety Report 6294760-5 (Version None)
Quarter: 2009Q3

REPORT INFORMATION
  Report Type: 
  Country: None (occurrence: None)
  Receive Date: 20090803
  Receipt Date: 20090728
  Transmission Date: 20100115
  Serious: Yes (Other)
  Sender: FDA-Public Use
  Company Number: US-PFIZER INC-2009232413

PATIENT
  Sex: Female

DRUGS (2)
  1. TOVIAZ [Suspect]
     Indication: POLLAKIURIA
     Dosage: 8 MG, 1X/DAY
     Route: 048
     Dates: start: 20090320, end: 20090327
  2. UROXATRAL [Concomitant]
     Dosage: UNK

REACTIONS (3)
  - BLADDER CANCER [None]
  - RENAL FAILURE [None]
  - URINARY RETENTION [None]
